FAERS Safety Report 10381130 (Version 1)
Quarter: 2014Q3

REPORT INFORMATION
  Report Type: Spontaneous
  Country: GB (occurrence: GB)
  Receive Date: 20140813
  Receipt Date: 20140813
  Transmission Date: 20150326
  Serious: Yes (Congenital Anomaly)
  Sender: FDA-Public Use
  Company Number: GB-TEVA-501479ISR

PATIENT
  Sex: Male

DRUGS (1)
  1. VALPROIC ACID. [Suspect]
     Active Substance: VALPROIC ACID
     Route: 064

REACTIONS (10)
  - Foetal exposure during pregnancy [Not Recovered/Not Resolved]
  - Coloboma [Not Recovered/Not Resolved]
  - Visual acuity reduced [Unknown]
  - Ankyloglossia congenital [Unknown]
  - Failure to thrive [Unknown]
  - Talipes [Unknown]
  - Inguinal hernia [Unknown]
  - Hypotonia [Unknown]
  - Speech disorder [Unknown]
  - Foetal anticonvulsant syndrome [Not Recovered/Not Resolved]
